FAERS Safety Report 17756446 (Version 1)
Quarter: 2020Q2

REPORT INFORMATION
  Report Type: Spontaneous
  Country: FR (occurrence: FR)
  Receive Date: 20200507
  Receipt Date: 20200507
  Transmission Date: 20200714
  Serious: Yes (Hospitalization)
  Sender: FDA-Public Use
  Company Number: FR-CADILA HEALTHCARE LIMITED-FR-ZYDUS-022746

PATIENT

DRUGS (5)
  1. PROPRANOLOL [Suspect]
     Active Substance: PROPRANOLOL HYDROCHLORIDE
     Indication: POISONING DELIBERATE
     Dosage: 14 DOSAGE FORM,UNIT DOSE 40 MG; IN TOTAL,(INTERVAL :1 TOTAL)
     Route: 048
     Dates: start: 20180228, end: 20180228
  2. TEMESTA (FRANCE) [Suspect]
     Active Substance: LORAZEPAM
     Indication: POISONING DELIBERATE
     Dosage: 26 DOSAGE FORM,IN TOTAL,(INTERVAL :1 TOTAL)
     Route: 048
     Dates: start: 20180228, end: 20180228
  3. PAROXETINE. [Suspect]
     Active Substance: PAROXETINE
     Indication: POISONING DELIBERATE
     Dosage: 14 DOSAGE FORM,UNIT DOSE 20 MG; IN TOTAL,(INTERVAL :1 TOTAL)
     Route: 048
     Dates: start: 20180228, end: 20180228
  4. IMOVANE [Suspect]
     Active Substance: ZOPICLONE
     Indication: POISONING DELIBERATE
     Dosage: 14 DOSAGE FORM,IN TOTAL,(INTERVAL :1 TOTAL)
     Route: 048
     Dates: start: 20180228, end: 20180228
  5. QUITAXON [Suspect]
     Active Substance: DOXEPIN HYDROCHLORIDE
     Indication: POISONING DELIBERATE
     Dosage: 10 DOSAGE FORM,IN TOTAL,(INTERVAL :1 TOTAL)
     Route: 048
     Dates: start: 20180228, end: 20180228

REACTIONS (2)
  - Pneumonia aspiration [Recovering/Resolving]
  - Coma [Recovered/Resolved]

NARRATIVE: CASE EVENT DATE: 20180228
